FAERS Safety Report 9050739 (Version 1)
Quarter: 2013Q1

REPORT INFORMATION
  Report Type: Spontaneous
  Country: US (occurrence: US)
  Receive Date: 20130205
  Receipt Date: 20130205
  Transmission Date: 20140127
  Serious: Yes (Hospitalization, Other)
  Sender: FDA-Public Use
  Company Number: US-BAYER-2012-114842

PATIENT
  Age: 25 Year
  Sex: Female
  Weight: 63.49 kg

DRUGS (1)
  1. YAZ [Suspect]
     Dosage: UNK
     Dates: start: 200806, end: 200903

REACTIONS (6)
  - Gallbladder disorder [None]
  - Cholecystitis chronic [None]
  - Diarrhoea [None]
  - Injury [None]
  - Pain [None]
  - Pain [None]
